FAERS Safety Report 6216985-7 (Version None)
Quarter: 2009Q2

REPORT INFORMATION
  Report Type: 
  Country: None (occurrence: None)
  Receive Date: 20090604
  Receipt Date: 20090525
  Transmission Date: 20091009
  Serious: Yes (Other)
  Sender: FDA-Public Use
  Company Number: 283867

PATIENT
  Age: 33 Year
  Sex: Female

DRUGS (3)
  1. VANCOMYCIN HCL [Suspect]
     Indication: ANTIBIOTIC THERAPY
     Dosage: 1 G
  2. CEFEPIME [Suspect]
     Indication: ANTIBIOTIC THERAPY
     Dosage: 2 X 1 G
  3. CIPROFLOXACIN [Suspect]
     Indication: ANTIBIOTIC THERAPY
     Dosage: 2 X 200 MG

REACTIONS (3)
  - DISORIENTATION [None]
  - LOSS OF CONSCIOUSNESS [None]
  - STATUS EPILEPTICUS [None]
